FAERS Safety Report 8997714 (Version 1)
Quarter: 2013Q1

REPORT INFORMATION
  Report Type: Report from Study
  Country: US (occurrence: US)
  Receive Date: 20130104
  Receipt Date: 20130104
  Transmission Date: 20140127
  Serious: Yes (Hospitalization)
  Sender: FDA-Public Use
  Company Number: PHHO2012US018586

PATIENT
  Age: 67 Year
  Sex: Female
  Weight: 88.89 kg

DRUGS (4)
  1. BLINDED ACZ885 [Suspect]
     Indication: CARDIOVASCULAR EVENT PROPHYLAXIS
     Dosage: CODE NOT BROKEN
     Route: 058
     Dates: start: 20110809, end: 20121116
  2. BLINDED NO TREATMENT RECEIVED [Suspect]
     Indication: CARDIOVASCULAR EVENT PROPHYLAXIS
     Dosage: CODE NOT BROKEN
     Route: 058
     Dates: start: 20110809, end: 20121116
  3. BLINDED PLACEBO [Suspect]
     Indication: CARDIOVASCULAR EVENT PROPHYLAXIS
     Dosage: CODE NOT BROKEN
     Route: 058
     Dates: start: 20110809, end: 20121116
  4. AMOXICILLIN [Concomitant]
     Indication: INFECTION
     Dosage: UNK
     Dates: start: 20121214

REACTIONS (1)
  - Cellulitis [Not Recovered/Not Resolved]
